FAERS Safety Report 6027838-1 (Version None)
Quarter: 2009Q1

REPORT INFORMATION
  Report Type: 
  Country: None (occurrence: None)
  Receive Date: 20090105
  Receipt Date: 20081229
  Transmission Date: 20090719
  Serious: Yes (Death)
  Sender: FDA-Public Use
  Company Number: IT-RB-007715-08

PATIENT
  Age: 32 Year
  Sex: Female

DRUGS (4)
  1. SUBUTEX [Suspect]
     Indication: DRUG DEPENDENCE
     Route: 060
     Dates: start: 20010821, end: 20010821
  2. MINIAS [Suspect]
     Dosage: DOSING INFORMATION UNKNOWN
  3. ANTIPSYCHOTIC AGENT [Suspect]
     Dosage: DOSING INFORMATION UNKNOWN
  4. HEROIN [Suspect]
     Dosage: DOSING INFORMATION UNKNOWN

REACTIONS (1)
  - CARDIO-RESPIRATORY ARREST [None]
